FAERS Safety Report 6780140-2 (Version None)
Quarter: 2010Q2

REPORT INFORMATION
  Report Type: 
  Country: None (occurrence: None)
  Receive Date: 20100618
  Receipt Date: 20100609
  Transmission Date: 20101027
  Serious: Yes (Hospitalization)
  Sender: FDA-Public Use
  Company Number: JP-AMGEN-US366429

PATIENT
  Sex: Female
  Weight: 33.3 kg

DRUGS (6)
  1. ENBREL [Suspect]
     Indication: RHEUMATOID ARTHRITIS
     Dosage: LYOPHILIZED; 25 MG 2 X PER 1 WEEK
     Route: 058
     Dates: start: 20080601
  2. ENBREL [Suspect]
     Dosage: SOLUTION FOR INJECTION; 25 MG 2 X PER 1 WEEK
     Route: 058
     Dates: end: 20090501
  3. URSO 250 [Concomitant]
     Route: 048
  4. MUCODYNE [Concomitant]
     Route: 048
  5. MICARDIS [Concomitant]
     Route: 048
  6. THYRADIN [Concomitant]
     Route: 048

REACTIONS (2)
  - LUNG INFECTION [None]
  - MYCOBACTERIUM AVIUM COMPLEX INFECTION [None]
